FAERS Safety Report 7558473-1 (Version None)
Quarter: 2011Q2

REPORT INFORMATION
  Report Type: 
  Country: None (occurrence: None)
  Receive Date: 20110620
  Receipt Date: 20110606
  Transmission Date: 20111010
  Serious: Yes (Hospitalization)
  Sender: FDA-Public Use
  Company Number: FR-GENENTECH-320310

PATIENT
  Sex: Female

DRUGS (9)
  1. SERETIDE [Suspect]
     Indication: RESPIRATORY DISORDER
     Dosage: 2 DF, QD
  2. BRICANYL [Suspect]
     Indication: RESPIRATORY DISORDER
     Dosage: 2 DF, QID
  3. XOLAIR [Suspect]
     Dosage: 150 MG, 1/MONTH
     Route: 058
     Dates: start: 20110328
  4. DESLORATADINE [Suspect]
     Indication: PRODUCT USED FOR UNKNOWN INDICATION
     Dosage: UNK
     Route: 065
  5. XOLAIR [Suspect]
     Indication: PRODUCT USED FOR UNKNOWN INDICATION
     Dosage: 150 MG, 1/MONTH
     Route: 058
     Dates: start: 20110101
  6. SEREVENT [Suspect]
     Indication: RESPIRATORY DISORDER
     Dosage: 25 A?G, BID
  7. SINGULAIR [Suspect]
     Indication: PRODUCT USED FOR UNKNOWN INDICATION
     Dosage: 5 MG, QD
  8. XOLAIR [Suspect]
     Dosage: 150 MG, 1/MONTH
     Route: 058
  9. VENTOLIN HFA [Concomitant]
     Indication: PRODUCT USED FOR UNKNOWN INDICATION

REACTIONS (5)
  - PARAESTHESIA [None]
  - MUSCULAR WEAKNESS [None]
  - HEADACHE [None]
  - HOT FLUSH [None]
  - TACHYCARDIA [None]
